FAERS Safety Report 9091503 (Version 1)
Quarter: 2013Q1

REPORT INFORMATION
  Report Type: Report from Study
  Country: US (occurrence: US)
  Receive Date: 20130131
  Receipt Date: 20130131
  Transmission Date: 20140127
  Serious: No
  Sender: FDA-Public Use
  Company Number: US-ABBOTT-12P-163-1015466-00

PATIENT
  Sex: Female

DRUGS (4)
  1. HUMIRA [Suspect]
     Indication: PRODUCT USED FOR UNKNOWN INDICATION
     Route: 058
     Dates: start: 20121103
  2. HUMIRA [Suspect]
  3. HUMIRA [Suspect]
  4. HUMIRA [Suspect]
     Dosage: MAINTENANCE DOSE

REACTIONS (1)
  - Nausea [Unknown]
